FAERS Safety Report 13883781 (Version 1)
Quarter: 2017Q3

REPORT INFORMATION
  Report Type: Report from Study
  Country: None (occurrence: DE)
  Receive Date: 20170819
  Receipt Date: 20170819
  Transmission Date: 20171127
  Serious: Yes (Hospitalization)
  Sender: FDA-Public Use
  Company Number: DE-ABBVIE-17K-062-2074463-00

PATIENT
  Sex: Male

DRUGS (1)
  1. DUODOPA [Suspect]
     Active Substance: CARBIDOPA\LEVODOPA
     Indication: PARKINSON^S DISEASE
     Dosage: MD 7.0ML; CRD1 6.4ML/H; CRD2 6.6ML/H; CRD3 6.8ML/H; CRN 3.1ML/H; ED 2.5ML
     Route: 050
     Dates: start: 20140715

REACTIONS (2)
  - Disorientation [Unknown]
  - Movement disorder [Not Recovered/Not Resolved]
